FAERS Safety Report 16771667 (Version 1)
Quarter: 2019Q3

REPORT INFORMATION
  Report Type: Spontaneous
  Country: US (occurrence: US)
  Receive Date: 20190715
  Receipt Date: 20190715
  Transmission Date: 20191005
  Serious: Yes (Death)
  Sender: FDA-Public Use
  Company Number: None

PATIENT
  Age: 61 Year
  Sex: Male

DRUGS (1)
  1. GLEOSTINE [Suspect]
     Active Substance: LOMUSTINE
     Route: 048
     Dates: start: 20190402, end: 20190705

REACTIONS (1)
  - Death [None]
